FAERS Safety Report 9737443 (Version 1)
Quarter: 2013Q4

REPORT INFORMATION
  Report Type: Spontaneous
  Country: AR (occurrence: AR)
  Receive Date: 20131206
  Receipt Date: 20131206
  Transmission Date: 20140711
  Serious: Yes (Other)
  Sender: FDA-Public Use
  Company Number: AR-ABBVIE-13P-007-1176736-00

PATIENT
  Age: 7 Year
  Sex: Male
  Weight: 23 kg

DRUGS (5)
  1. KLARICID FORTE [Suspect]
     Indication: PNEUMONIA
     Dosage: FORM STRENGTH: 250MG/5ML; DAILY DOSE: 8 ML
     Dates: start: 20131113
  2. KLARICID FORTE [Suspect]
     Indication: PYREXIA
  3. KLARICID FORTE [Suspect]
     Indication: SINUSITIS
  4. KLARICID FORTE [Suspect]
     Indication: PNEUMONITIS
  5. AMOXICILLIN [Concomitant]
     Indication: PRODUCT USED FOR UNKNOWN INDICATION

REACTIONS (2)
  - Blood alkaline phosphatase increased [Unknown]
  - Drug ineffective [Unknown]
